FAERS Safety Report 4481863-0 (Version None)
Quarter: 2004Q3

REPORT INFORMATION
  Report Type: 
  Country: None (occurrence: None)
  Receive Date: 20040921
  Receipt Date: 20030818
  Transmission Date: 20050211
  Serious: Yes (Hospitalization)
  Sender: FDA-Public Use
  Company Number: 163-20785-03020114

PATIENT
  Age: 45 Year
  Sex: Male

DRUGS (3)
  1. THALOMID [Suspect]
     Indication: MYELODYSPLASTIC SYNDROME
     Dosage: 100 MG, DAILY, ORAL
     Route: 048
     Dates: start: 20030205
  2. IDARUBICIN HCL [Concomitant]
  3. CYTARABINE [Concomitant]
     Indication: MYELODYSPLASTIC SYNDROME
     Dates: start: 20030205

REACTIONS (5)
  - NEUTROPENIA [None]
  - NO ADVERSE DRUG EFFECT [None]
  - NO ADVERSE EFFECT [None]
  - PYREXIA [None]
  - THROMBOCYTOPENIA [None]
